FAERS Safety Report 5481340-4 (Version None)
Quarter: 2007Q4

REPORT INFORMATION
  Report Type: 
  Country: None (occurrence: None)
  Receive Date: 20071004
  Receipt Date: 20071004
  Transmission Date: 20080405
  Serious: Yes (Life-Threatening)
  Sender: FDA-Public Use
  Company Number: None

PATIENT
  Age: 33 Year
  Sex: Male
  Weight: 79.3795 kg

DRUGS (1)
  1. CHANTIX [Suspect]
     Indication: SMOKING CESSATION THERAPY
     Dosage: 1 TAB 2 TIMES A DAY PO
     Route: 048
     Dates: start: 20070920, end: 20071003

REACTIONS (7)
  - ABNORMAL DREAMS [None]
  - ABNORMAL SLEEP-RELATED EVENT [None]
  - ALCOHOL USE [None]
  - HALLUCINATION [None]
  - IRRITABILITY [None]
  - MEMORY IMPAIRMENT [None]
  - SOMNAMBULISM [None]
